FAERS Safety Report 11615186 (Version 1)
Quarter: 2015Q4

REPORT INFORMATION
  Report Type: Spontaneous
  Country: US (occurrence: None)
  Receive Date: 20151008
  Receipt Date: 20151008
  Transmission Date: 20160304
  Serious: No
  Sender: FDA-Public Use
  Company Number: None

PATIENT
  Age: 7 Year
  Sex: Male
  Weight: 22.68 kg

DRUGS (3)
  1. GUANFACINE ER 4 MG ACTAVIS PHARMACEUTICAL [Suspect]
     Active Substance: GUANFACINE
     Indication: ATTENTION DEFICIT/HYPERACTIVITY DISORDER
     Route: 048
     Dates: start: 20150828, end: 20151007
  2. METHYLPHENIDATE ER [Concomitant]
     Active Substance: METHYLPHENIDATE
  3. TRAZODONE [Concomitant]
     Active Substance: TRAZODONE HYDROCHLORIDE

REACTIONS (2)
  - Disease recurrence [None]
  - Product substitution issue [None]
